FAERS Safety Report 20487100 (Version 1)
Quarter: 2022Q1

REPORT INFORMATION
  Report Type: Report from Study
  Country: AU (occurrence: AU)
  Receive Date: 20220217
  Receipt Date: 20220217
  Transmission Date: 20220423
  Serious: Yes (Other)
  Sender: FDA-Public Use
  Company Number: AU-JNJFOC-20210815865

PATIENT
  Age: 79 Year
  Sex: Male

DRUGS (2)
  1. IMBRUVICA [Suspect]
     Active Substance: IBRUTINIB
     Indication: Chronic lymphocytic leukaemia
     Route: 048
     Dates: start: 20141201
  2. IMBRUVICA [Suspect]
     Active Substance: IBRUTINIB
     Dosage: DOSE DECREASED
     Route: 048
     Dates: start: 20200201

REACTIONS (3)
  - Immunodeficiency [Not Recovered/Not Resolved]
  - Therapy change [Unknown]
  - Skin infection [Recovered/Resolved]

NARRATIVE: CASE EVENT DATE: 20200201
